FAERS Safety Report 21265770 (Version 1)
Quarter: 2022Q3

REPORT INFORMATION
  Report Type: Other
  Country: CA (occurrence: CA)
  Receive Date: 20220829
  Receipt Date: 20220829
  Transmission Date: 20221027
  Serious: Yes (Other)
  Sender: FDA-Public Use
  Company Number: CA-CELLTRION INC.-2022CA014051

PATIENT

DRUGS (1)
  1. TRUXIMA [Suspect]
     Active Substance: RITUXIMAB-ABBS
     Indication: Nephrotic syndrome
     Dosage: 500 MILLIGRAM, 1 EVERY 1 WEEKS (SINGLE DOSE VIAL)

REACTIONS (3)
  - Nephrotic syndrome [Unknown]
  - Off label use [Unknown]
  - Off label use [Unknown]
